FAERS Safety Report 8512677-X (Version None)
Quarter: 2012Q3

REPORT INFORMATION
  Report Type: 
  Country: None (occurrence: None)
  Receive Date: 20120716
  Receipt Date: 20120716
  Transmission Date: 20120928
  Serious: Yes (Hospitalization)
  Sender: FDA-Public Use
  Company Number: ES-PFIZER INC-2012165021

PATIENT
  Age: 62 Year
  Sex: Male

DRUGS (13)
  1. AMARYL [Concomitant]
     Dosage: 2 MG, 1X/DAY
     Route: 065
  2. SERTRALINE HYDROCHLORIDE [Concomitant]
     Dosage: 100 MG, 1X/DAY
     Route: 065
  3. CARDURA [Concomitant]
     Dosage: 4 MG, 1X/DAY
     Route: 065
  4. IRBESARTAN AND HYDROCHLOROTHIAZIDE [Concomitant]
     Dosage: 1 DF, 1X/DAY
     Route: 065
  5. BICALUTAMIDE [Concomitant]
     Route: 065
  6. ASPIRIN [Concomitant]
     Dosage: 300 MG, 1X/DAY
     Route: 065
  7. ALPRAZOLAM [Concomitant]
     Dosage: 0.5 MG, 1X/DAY
     Route: 065
  8. FLUVASTATIN [Concomitant]
     Dosage: 80 MG, 1X/DAY
     Route: 065
  9. AMARYL [Concomitant]
     Dosage: 4 MG, 1X/DAY
     Route: 065
  10. JANUMET [Concomitant]
     Dosage: 1 DF, 2X/DAY
     Route: 065
  11. CASODEX [Concomitant]
     Dosage: 150 MG, 1X/DAY
     Route: 065
  12. SUTENT [Suspect]
     Indication: RENAL CANCER STAGE IV
     Dosage: 50 MG, 1X/DAY
     Route: 065
     Dates: start: 20120127
  13. RABEPRAZOLE SODIUM [Concomitant]
     Dosage: 20 MG, 1X/DAY
     Route: 065

REACTIONS (4)
  - SCROTAL PAIN [None]
  - PENILE ERYTHEMA [None]
  - SCROTAL ERYTHEMA [None]
  - PENILE PAIN [None]
